FAERS Safety Report 9338180 (Version 1)
Quarter: 2013Q2

REPORT INFORMATION
  Report Type: Report from Study
  Country: CO (occurrence: CO)
  Receive Date: 20130610
  Receipt Date: 20130610
  Transmission Date: 20140414
  Serious: Yes (Death, Hospitalization, Other)
  Sender: FDA-Public Use
  Company Number: CO-ROCHE-1233230

PATIENT
  Age: 25 Year
  Sex: Female

DRUGS (1)
  1. MYCOPHENOLATE MOFETIL [Suspect]
     Indication: RENAL TRANSPLANT
     Route: 048
     Dates: start: 20111206

REACTIONS (4)
  - Convulsion [Fatal]
  - Headache [Fatal]
  - Transplant rejection [Unknown]
  - Blood creatinine increased [Unknown]
